FAERS Safety Report 9483775 (Version 2)
Quarter: 2013Q3

REPORT INFORMATION
  Report Type: Spontaneous
  Country: CA (occurrence: CA)
  Receive Date: 20130828
  Receipt Date: 20130828
  Transmission Date: 20140515
  Serious: Yes (Hospitalization)
  Sender: FDA-Public Use
  Company Number: CA-AMGEN-KDL279007

PATIENT
  Age: 76 Year
  Sex: Female

DRUGS (1)
  1. ENBREL [Suspect]
     Indication: PSORIATIC ARTHROPATHY
     Dosage: UNK UNK, QWK
     Route: 065
     Dates: start: 20040928

REACTIONS (9)
  - Bladder prolapse [Unknown]
  - Clostridium difficile infection [Unknown]
  - Vomiting [Unknown]
  - Psoriatic arthropathy [Unknown]
  - Injection site pain [Unknown]
  - Fall [Unknown]
  - Wound [Unknown]
  - Wound haemorrhage [Not Recovered/Not Resolved]
  - Pruritus [Unknown]
